FAERS Safety Report 11321904 (Version 1)
Quarter: 2015Q3

REPORT INFORMATION
  Report Type: Spontaneous
  Country: US (occurrence: US)
  Receive Date: 20150729
  Receipt Date: 20150729
  Transmission Date: 20151125
  Serious: No
  Sender: FDA-Public Use
  Company Number: US-MYLANLABS-2014S1013473

PATIENT
  Sex: Male

DRUGS (3)
  1. ASACOL [Concomitant]
     Active Substance: MESALAMINE
     Indication: COLITIS ULCERATIVE
     Dosage: .375 MG,QD
     Route: 048
  2. PAROXETINE HYDROCHLORIDE CONTROLLED-RELEASE [Suspect]
     Active Substance: PAROXETINE HYDROCHLORIDE
     Dosage: 25 MG,QD
     Route: 048
     Dates: start: 201405
  3. PAROXETINE HYDROCHLORIDE. [Suspect]
     Active Substance: PAROXETINE HYDROCHLORIDE
     Dosage: 37.5 MG,QD
     Route: 048
     Dates: end: 201405

REACTIONS (4)
  - Feeling abnormal [Not Recovered/Not Resolved]
  - Decreased appetite [Not Recovered/Not Resolved]
  - Tremor [Not Recovered/Not Resolved]
  - Nausea [Not Recovered/Not Resolved]
